FAERS Safety Report 12154752 (Version 1)
Quarter: 2016Q1

REPORT INFORMATION
  Report Type: Spontaneous
  Country: US (occurrence: US)
  Receive Date: 20160307
  Receipt Date: 20160307
  Transmission Date: 20160526
  Serious: No
  Sender: FDA-Public Use
  Company Number: US-ABBVIE-15P-163-1524420-00

PATIENT

DRUGS (1)
  1. BIAXIN [Suspect]
     Active Substance: CLARITHROMYCIN
     Indication: BRONCHITIS
     Route: 048

REACTIONS (8)
  - Nausea [Unknown]
  - Dizziness [Unknown]
  - Feeling of despair [Unknown]
  - Nightmare [Unknown]
  - Feeling abnormal [Unknown]
  - Dry mouth [Unknown]
  - Dysgeusia [Unknown]
  - Depressed mood [Unknown]
